FAERS Safety Report 23286661 (Version 1)
Quarter: 2023Q4

REPORT INFORMATION
  Report Type: Report from Study
  Country: CA (occurrence: CA)
  Receive Date: 20231212
  Receipt Date: 20231212
  Transmission Date: 20240110
  Serious: Yes (Hospitalization, Other)
  Sender: FDA-Public Use
  Company Number: CA-BAYER-2023A176006

PATIENT
  Sex: Male

DRUGS (1)
  1. EYLEA [Suspect]
     Active Substance: AFLIBERCEPT
     Indication: Diabetic retinal oedema
     Dosage: UNK, STRENGTH:40MG/ML
     Dates: start: 20220826

REACTIONS (2)
  - Blindness unilateral [Recovered/Resolved with Sequelae]
  - Eye infection intraocular [Recovered/Resolved with Sequelae]

NARRATIVE: CASE EVENT DATE: 20230804
